FAERS Safety Report 5307231-7 (Version None)
Quarter: 2007Q2

REPORT INFORMATION
  Report Type: 
  Country: None (occurrence: None)
  Receive Date: 20070423
  Receipt Date: 20070423
  Transmission Date: 20071010
  Serious: Yes (Other)
  Sender: FDA-Public Use
  Company Number: None

PATIENT
  Age: 39 Year
  Sex: Female

DRUGS (2)
  1. LISTERINE WHITENING [Suspect]
     Indication: DENTAL DISORDER PROPHYLAXIS
     Dates: start: 20061201, end: 20070104
  2. AQUAFRESH TOOTHPASTE [Concomitant]

REACTIONS (3)
  - CANDIDIASIS [None]
  - FEELING ABNORMAL [None]
  - TONGUE BLACK HAIRY [None]
